FAERS Safety Report 6344754-6 (Version None)
Quarter: 2009Q3

REPORT INFORMATION
  Report Type: 
  Country: None (occurrence: None)
  Receive Date: 20090904
  Receipt Date: 20090817
  Transmission Date: 20100115
  Serious: Yes (Death)
  Sender: FDA-Public Use
  Company Number: 2009AL000843

PATIENT
  Age: 60 Year
  Sex: Male

DRUGS (14)
  1. DIGOXIN [Suspect]
     Indication: ATRIAL FIBRILLATION
     Dosage: 0.125MG, DAILY, PO
     Route: 048
  2. RELION [Concomitant]
  3. ALLPURINOL [Concomitant]
  4. ALTRACE [Concomitant]
  5. PACERONE [Concomitant]
  6. PROTONIX [Concomitant]
  7. AMITRYPTYLIN [Concomitant]
  8. SULFAMETHOXAZOLE AND TRIMETHOPRIM [Concomitant]
  9. KETOCONAZOLE [Concomitant]
  10. ZOCOR [Concomitant]
  11. CARISPRODOL [Concomitant]
  12. STAGESIC [Concomitant]
  13. COREG [Concomitant]
  14. ALBUTEROL [Concomitant]

REACTIONS (4)
  - ANHEDONIA [None]
  - ANXIETY [None]
  - MULTIPLE INJURIES [None]
  - PAIN [None]
